FAERS Safety Report 6111861-2 (Version None)
Quarter: 2009Q1

REPORT INFORMATION
  Report Type: 
  Country: None (occurrence: None)
  Receive Date: 20090311
  Receipt Date: 20090303
  Transmission Date: 20090719
  Serious: Yes (Hospitalization)
  Sender: FDA-Public Use
  Company Number: US-ASTRAZENECA-2009UW05732

PATIENT
  Age: 23150 Day
  Sex: Female

DRUGS (2)
  1. NEXIUM [Suspect]
     Route: 048
     Dates: start: 20040811
  2. TOPROL-XL [Suspect]
     Route: 048
     Dates: start: 20040811

REACTIONS (1)
  - MYOCARDIAL INFARCTION [None]
